FAERS Safety Report 13356431 (Version 6)
Quarter: 2018Q2

REPORT INFORMATION
  Report Type: Report from Study
  Country: JP (occurrence: JP)
  Receive Date: 20170321
  Receipt Date: 20180409
  Transmission Date: 20180711
  Serious: Yes (Death, Other)
  Sender: FDA-Public Use
  Company Number: JP-BRISTOL-MYERS SQUIBB COMPANY-BMS-2017-023896

PATIENT
  Age: 43 Year
  Sex: Female
  Weight: 95 kg

DRUGS (8)
  1. IPILIMUMAB [Suspect]
     Active Substance: IPILIMUMAB
     Indication: MALIGNANT MELANOMA STAGE IV
     Dosage: 3 MG/KG, QD
     Route: 041
     Dates: start: 20170214, end: 20170214
  2. POTASSIUM ASPARTATE [Concomitant]
     Active Substance: POTASSIUM ASPARTATE
     Indication: HYPOMAGNESAEMIA
     Dosage: 1 DF, UNK
     Route: 042
     Dates: start: 20170220, end: 20170223
  3. RANMARK [Concomitant]
     Active Substance: DENOSUMAB
     Indication: METASTASES TO BONE
     Dosage: 120 MG, UNK
     Route: 042
     Dates: start: 20170201, end: 20170201
  4. CALCICOL [Concomitant]
     Active Substance: CALCIUM GLUCONATE
     Indication: HYPOCALCAEMIA
     Dosage: 5 UNK, UNK
     Route: 042
     Dates: start: 20170219, end: 20170221
  5. OPDIVO [Suspect]
     Active Substance: NIVOLUMAB
     Indication: MALIGNANT MELANOMA
     Dosage: 3 MG/KG, Q3WK
     Route: 041
     Dates: start: 20160908, end: 20170112
  6. CALCIUM CHLORIDE DIHYDRATE [Concomitant]
     Active Substance: CALCIUM CHLORIDE
     Indication: HYPOCALCAEMIA
     Dosage: 40 UNK, UNK
     Route: 042
     Dates: start: 20170222, end: 20170223
  7. ALBUMIN [Concomitant]
     Active Substance: ALBUMIN HUMAN
     Indication: HYPOALBUMINAEMIA
     Dosage: UNK
     Route: 042
     Dates: start: 20170219, end: 20170221
  8. MAGNESIUM OXIDE. [Concomitant]
     Active Substance: MAGNESIUM OXIDE
     Indication: HYPOMAGNESAEMIA
     Dosage: 60 UNK, UNK
     Route: 042
     Dates: start: 20170220, end: 20170221

REACTIONS (8)
  - Oedema peripheral [Unknown]
  - Drug eruption [Recovered/Resolved]
  - Hypocalcaemia [Recovering/Resolving]
  - Pyrexia [Unknown]
  - Malignant neoplasm progression [Fatal]
  - Atrial fibrillation [Not Recovered/Not Resolved]
  - Hypokalaemia [Recovering/Resolving]
  - Hypomagnesaemia [Recovering/Resolving]

NARRATIVE: CASE EVENT DATE: 20170219
